FAERS Safety Report 8911082 (Version 1)
Quarter: 2012Q4

REPORT INFORMATION
  Report Type: 
  Country: US (occurrence: US)
  Receive Date: 20121116
  Receipt Date: 20121116
  Transmission Date: 20130627
  Serious: No
  Sender: FDA-Public Use
  Company Number: US-009507513-1211USA006235

PATIENT
  Sex: Female

DRUGS (1)
  1. SAPHRIS [Suspect]
     Dosage: 1/8th

REACTIONS (4)
  - Drug prescribing error [Unknown]
  - Wrong technique in drug usage process [Unknown]
  - Expired drug administered [Unknown]
  - No adverse event [Unknown]
